FAERS Safety Report 10408168 (Version 2)
Quarter: 2015Q2

REPORT INFORMATION
  Report Type: Spontaneous
  Country: DE (occurrence: DE)
  Receive Date: 20140826
  Receipt Date: 20150626
  Transmission Date: 20150821
  Serious: Yes (Hospitalization, Other)
  Sender: FDA-Public Use
  Company Number: DE-UCBSA-2014009038

PATIENT
  Age: 89 Year
  Sex: Female
  Weight: 60 kg

DRUGS (3)
  1. ERGENYL [Concomitant]
     Active Substance: VALPROIC ACID
     Dosage: TOTAL AMOUNT: 400 MG
     Route: 048
  2. KEPPRA [Suspect]
     Active Substance: LEVETIRACETAM
     Dosage: 2X/DAY (BID), 400MG FIRST DOSE AND 1600 MG SECOND DOSE
     Route: 042
     Dates: start: 20140216
  3. KEPPRA [Suspect]
     Active Substance: LEVETIRACETAM
     Dosage: 400 MG, 2X/DAY (BID)
     Route: 042
     Dates: end: 20140215

REACTIONS (2)
  - Sopor [Recovered/Resolved]
  - Incorrect dose administered [Unknown]

NARRATIVE: CASE EVENT DATE: 20140216
